FAERS Safety Report 17685108 (Version 4)
Quarter: 2020Q4

REPORT INFORMATION
  Report Type: Spontaneous
  Country: US (occurrence: US)
  Receive Date: 20200420
  Receipt Date: 20201005
  Transmission Date: 20210113
  Serious: Yes (Other)
  Sender: FDA-Public Use
  Company Number: US-GILEAD-2020-0459636

PATIENT
  Age: 41 Year
  Sex: Male
  Weight: 104.31 kg

DRUGS (16)
  1. FORTEO [Concomitant]
     Active Substance: TERIPARATIDE
  2. ATRIPLA [Suspect]
     Active Substance: EFAVIRENZ\EMTRICITABINE\TENOFOVIR DISOPROXIL FUMARATE
     Dosage: UNK
     Route: 048
     Dates: start: 201004, end: 201603
  3. TRIUMEQ [Concomitant]
     Active Substance: ABACAVIR SULFATE\DOLUTEGRAVIR SODIUM\LAMIVUDINE
     Dosage: UNK
     Dates: start: 201603
  4. ACETAMINOPHEN. [Concomitant]
     Active Substance: ACETAMINOPHEN
  5. WARFARIN [Concomitant]
     Active Substance: WARFARIN
  6. ATRIPLA [Suspect]
     Active Substance: EFAVIRENZ\EMTRICITABINE\TENOFOVIR DISOPROXIL FUMARATE
     Indication: HIV INFECTION
     Dosage: UNK
     Route: 048
     Dates: start: 201501, end: 201602
  7. ATRIPLA [Suspect]
     Active Substance: EFAVIRENZ\EMTRICITABINE\TENOFOVIR DISOPROXIL FUMARATE
     Dosage: UNK
     Route: 048
     Dates: start: 201004, end: 201602
  8. BACTRIM [Concomitant]
     Active Substance: SULFAMETHOXAZOLE\TRIMETHOPRIM
  9. FLOMAX [Concomitant]
     Active Substance: TAMSULOSIN HYDROCHLORIDE
  10. VANCOMYCIN [Concomitant]
     Active Substance: VANCOMYCIN
  11. AMOXICILLIN. [Concomitant]
     Active Substance: AMOXICILLIN
  12. LOVENOX [Concomitant]
     Active Substance: ENOXAPARIN SODIUM
  13. HEPARIN [Concomitant]
     Active Substance: HEPARIN SODIUM
  14. INDINAVIR [Concomitant]
     Active Substance: INDINAVIR
  15. LASIX [Concomitant]
     Active Substance: FUROSEMIDE
  16. TESTOSTERONE. [Concomitant]
     Active Substance: TESTOSTERONE
     Route: 062

REACTIONS (13)
  - Emotional distress [Not Recovered/Not Resolved]
  - Fear [Not Recovered/Not Resolved]
  - Anhedonia [Unknown]
  - Bone density decreased [Unknown]
  - Osteoporosis [Not Recovered/Not Resolved]
  - Osteopenia [Not Recovered/Not Resolved]
  - Anxiety [Unknown]
  - Pain [Unknown]
  - Mobility decreased [Not Recovered/Not Resolved]
  - Economic problem [Not Recovered/Not Resolved]
  - Bone loss [Unknown]
  - Depression [Unknown]
  - Osteonecrosis [Unknown]

NARRATIVE: CASE EVENT DATE: 2015
